FAERS Safety Report 25162700 (Version 1)
Quarter: 2025Q2

REPORT INFORMATION
  Report Type: Report from Study
  Country: US (occurrence: US)
  Receive Date: 20250404
  Receipt Date: 20250404
  Transmission Date: 20250717
  Serious: Yes (Death, Other)
  Sender: GILEAD
  Company Number: US-GILEAD-2025-0709444

PATIENT
  Age: 54 Year
  Sex: Female

DRUGS (21)
  1. AMBRISENTAN [Suspect]
     Active Substance: AMBRISENTAN
     Indication: Pulmonary hypertension
     Dosage: 10 MG, TAKE 1 TABLET BY MOUTH EVERY 24 HOURS. DO NOT CRUSH OR CHEW
     Route: 065
     Dates: start: 20240314
  2. FERROUS GLUCONATE [Concomitant]
     Active Substance: FERROUS GLUCONATE
  3. ALBUTEROL [Concomitant]
     Active Substance: ALBUTEROL
  4. BENZONATATE [Concomitant]
     Active Substance: BENZONATATE
  5. LEVETIRACETAM [Concomitant]
     Active Substance: LEVETIRACETAM
  6. POTASSIUM CHLORIDE [Concomitant]
     Active Substance: POTASSIUM CHLORIDE
  7. LORATADINE [Concomitant]
     Active Substance: LORATADINE
  8. AZELASTINE [Concomitant]
     Active Substance: AZELASTINE
  9. OXYCODONE [Concomitant]
     Active Substance: OXYCODONE
  10. SODIUM CHLORIDE [Concomitant]
     Active Substance: SODIUM CHLORIDE
  11. MAGNESIUM OXIDE [Concomitant]
     Active Substance: MAGNESIUM OXIDE
  12. LIDOCAINE [Concomitant]
     Active Substance: LIDOCAINE
  13. CALCIUM [Concomitant]
     Active Substance: CALCIUM
  14. SPIRONOLACTONE [Concomitant]
     Active Substance: SPIRONOLACTONE
  15. CYCLOBENZAPRINE [Concomitant]
     Active Substance: CYCLOBENZAPRINE
  16. NYSTATIN [Concomitant]
     Active Substance: NYSTATIN
  17. PANTOPRAZOLE [Concomitant]
     Active Substance: PANTOPRAZOLE
  18. VITAMIN D3 [Concomitant]
     Active Substance: CHOLECALCIFEROL
  19. SILDENAFIL [Concomitant]
     Active Substance: SILDENAFIL
  20. HEPARIN [Concomitant]
     Active Substance: HEPARIN SODIUM
  21. ALENDRONATE [Concomitant]
     Active Substance: ALENDRONATE SODIUM

REACTIONS (1)
  - Death [Fatal]

NARRATIVE: CASE EVENT DATE: 20250314
